FAERS Safety Report 5428340-8 (Version None)
Quarter: 2007Q3

REPORT INFORMATION
  Report Type: 
  Country: None (occurrence: None)
  Receive Date: 20070731
  Receipt Date: 20070430
  Transmission Date: 20080115
  Serious: No
  Sender: FDA-Public Use
  Company Number: US200705000264

PATIENT
  Age: 59 Year
  Sex: Female

DRUGS (2)
  1. BYETTA [Suspect]
     Indication: DIABETES MELLITUS
     Dosage: 5 UG, 2/D, SUBCUTANEOUS
     Route: 058
     Dates: start: 20060501
  2. LANTUS [Concomitant]

REACTIONS (3)
  - CANDIDIASIS [None]
  - ONYCHOCLASIS [None]
  - ORAL CANDIDIASIS [None]
